FAERS Safety Report 4766045-7 (Version None)
Quarter: 2005Q3

REPORT INFORMATION
  Report Type: 
  Country: None (occurrence: None)
  Receive Date: 20050912
  Receipt Date: 20050908
  Transmission Date: 20060218
  Serious: Yes (Hospitalization)
  Sender: FDA-Public Use
  Company Number: FR-GLAXOSMITHKLINE-B0393126A

PATIENT
  Age: 72 Year
  Sex: Female
  Weight: 89 kg

DRUGS (2)
  1. CLAMOXYL [Suspect]
     Dosage: 1G THREE TIMES PER DAY
     Route: 048
     Dates: start: 20050218, end: 20050223
  2. AUGMENTIN [Suspect]
     Dosage: 1G THREE TIMES PER DAY
     Route: 048
     Dates: start: 20050215, end: 20050218

REACTIONS (5)
  - ERYTHEMA [None]
  - NIKOLSKY'S SIGN [None]
  - PAIN [None]
  - SKIN DISORDER [None]
  - STEVENS-JOHNSON SYNDROME [None]
